FAERS Safety Report 6335758-8 (Version None)
Quarter: 2009Q3

REPORT INFORMATION
  Report Type: 
  Country: None (occurrence: None)
  Receive Date: 20090828
  Receipt Date: 20090813
  Transmission Date: 20100115
  Serious: Yes (Other)
  Sender: FDA-Public Use
  Company Number: 2009002475

PATIENT
  Sex: Female

DRUGS (1)
  1. ERLOTINIB HYDROCHLORIDE [Suspect]
     Indication: LUNG ADENOCARCINOMA
     Dosage: 150 MG, QD, ORAL
     Route: 048

REACTIONS (1)
  - PULMONARY EMBOLISM [None]
